FAERS Safety Report 7846407-1 (Version None)
Quarter: 2011Q4

REPORT INFORMATION
  Report Type: 
  Country: None (occurrence: None)
  Receive Date: 20111025
  Receipt Date: 20111025
  Transmission Date: 20120403
  Serious: Yes (Hospitalization)
  Sender: FDA-Public Use
  Company Number: None

PATIENT
  Age: 67 Year
  Sex: Female
  Weight: 69 kg

DRUGS (2)
  1. BENDAMUSTIN [Suspect]
     Indication: NON-HODGKIN'S LYMPHOMA
     Dosage: 150MG
     Route: 042
     Dates: start: 20111003, end: 20111004
  2. RITUXIMAB [Concomitant]
     Indication: NON-HODGKIN'S LYMPHOMA
     Dosage: 700MG
     Route: 042
     Dates: start: 20111003, end: 20111003

REACTIONS (1)
  - PANCREATITIS [None]
